FAERS Safety Report 8200814-6 (Version None)
Quarter: 2012Q1

REPORT INFORMATION
  Report Type: 
  Country: None (occurrence: None)
  Receive Date: 20120306
  Receipt Date: 20120224
  Transmission Date: 20120608
  Serious: Yes (Hospitalization)
  Sender: FDA-Public Use
  Company Number: LMI-2012-00053

PATIENT
  Age: 44 Year
  Sex: Male
  Weight: 120 kg

DRUGS (6)
  1. SPIRONOLACTONE [Concomitant]
  2. MARCUMAR [Concomitant]
  3. METOPROLOL SUCCINATE [Concomitant]
  4. DEFINITY [Suspect]
     Indication: ECHOCARDIOGRAM
     Dosage: ,INTRAVENOUS
     Route: 042
     Dates: start: 20110101, end: 20110101
  5. RAMIPRIL [Concomitant]
  6. TORSEMIDE [Concomitant]

REACTIONS (3)
  - CHEST PAIN [None]
  - ATRIAL FIBRILLATION [None]
  - RESPIRATORY TRACT INFECTION [None]
